FAERS Safety Report 8507939-6 (Version None)
Quarter: 2012Q3

REPORT INFORMATION
  Report Type: 
  Country: None (occurrence: None)
  Receive Date: 20120709
  Receipt Date: 20120709
  Transmission Date: 20120928
  Serious: Yes (Other)
  Sender: FDA-Public Use
  Company Number: None

PATIENT

DRUGS (2)
  1. NUVIGIL	250 MG CEPHALON INC [Suspect]
     Dosage: 250 1 X A DAY PO
     Route: 048
     Dates: start: 20120620, end: 20120630
  2. NUVIGIL	250 MG CEPHALON INC [Suspect]
     Dosage: 250 1 X A DAY PO
     Route: 048
     Dates: start: 20120601, end: 20120610

REACTIONS (1)
  - MUSCLE SPASMS [None]
